FAERS Safety Report 6869786-0 (Version None)
Quarter: 2010Q3

REPORT INFORMATION
  Report Type: 
  Country: None (occurrence: None)
  Receive Date: 20100722
  Receipt Date: 20100707
  Transmission Date: 20110219
  Serious: Yes (Death, Hospitalization)
  Sender: FDA-Public Use
  Company Number: IL-AMGEN-QUU426314

PATIENT
  Age: 77 Year
  Sex: Male
  Weight: 120 kg

DRUGS (2)
  1. ENBREL [Suspect]
     Indication: PSORIASIS
     Dosage: 25 MG, FREQUENCY UNKNOWN
     Dates: start: 20060101, end: 20070101
  2. ENALAPRIL MALEATE [Concomitant]

REACTIONS (8)
  - ASTHENIA [None]
  - CARDIAC FAILURE [None]
  - CONCOMITANT DISEASE PROGRESSION [None]
  - DEATH [None]
  - DECUBITUS ULCER [None]
  - DIZZINESS [None]
  - PULMONARY FIBROSIS [None]
  - RENAL FAILURE [None]
